FAERS Safety Report 9805750 (Version 1)
Quarter: 2014Q1

REPORT INFORMATION
  Report Type: Spontaneous
  Country: US (occurrence: US)
  Receive Date: 20140109
  Receipt Date: 20140109
  Transmission Date: 20141002
  Serious: Yes (Death)
  Sender: FDA-Public Use
  Company Number: US-PFIZER INC-2014006173

PATIENT
  Age: 42 Year
  Sex: Male

DRUGS (7)
  1. PHENYTOIN [Suspect]
     Dosage: UNK
  2. CARBON MONOXIDE [Suspect]
     Dosage: UNK
  3. COCAINE [Suspect]
     Dosage: UNK
  4. PHENOBARBITAL [Suspect]
     Dosage: UNK
  5. QUETIAPINE [Suspect]
     Dosage: UNK
  6. CITALOPRAM [Suspect]
     Dosage: UNK
  7. MIRTAZAPINE [Suspect]
     Dosage: UNK

REACTIONS (1)
  - Environmental exposure [Fatal]
